FAERS Safety Report 10478439 (Version 5)
Quarter: 2015Q1

REPORT INFORMATION
  Report Type: Spontaneous
  Country: JP (occurrence: JP)
  Receive Date: 20140926
  Receipt Date: 20150123
  Transmission Date: 20150720
  Serious: Yes (Other)
  Sender: FDA-Public Use
  Company Number: JP-PFIZER INC-2014263828

PATIENT
  Age: 74 Year
  Sex: Female

DRUGS (7)
  1. LYRICA [Suspect]
     Active Substance: PREGABALIN
     Indication: POST HERPETIC NEURALGIA
     Dosage: 25 MG, 1X/DAY
     Route: 048
     Dates: start: 20140920, end: 20140922
  2. AMLODIN [Concomitant]
     Active Substance: AMLODIPINE BESYLATE
     Indication: HYPERTENSION
     Dosage: 2.5 MG, 1X/DAY
     Route: 048
     Dates: start: 2011, end: 201406
  3. VALTREX [Concomitant]
     Active Substance: VALACYCLOVIR HYDROCHLORIDE
     Indication: HERPES ZOSTER
     Dosage: 1000 MG, 3X/DAY
     Route: 048
     Dates: start: 20140920
  4. METHYCOBAL [Concomitant]
     Active Substance: METHYLCOBALAMIN
     Indication: HERPES ZOSTER
     Dosage: 500 ?G, 3X/DAY
     Route: 048
     Dates: start: 20140920
  5. GASTER [Concomitant]
     Active Substance: FAMOTIDINE
     Indication: PROPHYLAXIS
     Dosage: 20 MG, 2X/DAY
     Route: 048
     Dates: start: 20140920
  6. AMLODIN [Concomitant]
     Active Substance: AMLODIPINE BESYLATE
     Dosage: 5 MG, 1X/DAY
     Route: 048
     Dates: start: 201406
  7. LOXONIN [Concomitant]
     Active Substance: LOXOPROFEN SODIUM
     Indication: PAIN
     Dosage: 60 MG, 2X/DAY
     Route: 048
     Dates: start: 20140920

REACTIONS (5)
  - Vitreous haemorrhage [Recovering/Resolving]
  - Condition aggravated [Recovering/Resolving]
  - Vision blurred [Recovered/Resolved]
  - Retinal vein occlusion [Recovering/Resolving]
  - Retinal haemorrhage [Recovering/Resolving]

NARRATIVE: CASE EVENT DATE: 20140922
